FAERS Safety Report 21383085 (Version 1)
Quarter: 2022Q3

REPORT INFORMATION
  Report Type: Spontaneous
  Country: US (occurrence: US)
  Receive Date: 20220927
  Receipt Date: 20220927
  Transmission Date: 20221026
  Serious: No
  Sender: FDA-Public Use
  Company Number: US-SA-SAC20220922000278

PATIENT
  Age: 2 Year
  Sex: Male

DRUGS (4)
  1. DUPIXENT [Suspect]
     Active Substance: DUPILUMAB
     Indication: Dermatitis atopic
     Dosage: 200 MG, Q4W
     Route: 058
     Dates: start: 20220728
  2. EUCRISA [Concomitant]
     Active Substance: CRISABOROLE
  3. MOMETASONE [Concomitant]
     Active Substance: MOMETASONE
     Dosage: 025MG
  4. TRIAZOLAM [Concomitant]
     Active Substance: TRIAZOLAM

REACTIONS (2)
  - Sleep disorder [Unknown]
  - Asthma [Unknown]

NARRATIVE: CASE EVENT DATE: 20220801
